FAERS Safety Report 5128781-2 (Version None)
Quarter: 2006Q4

REPORT INFORMATION
  Report Type: 
  Country: None (occurrence: None)
  Receive Date: 20061017
  Receipt Date: 20061010
  Transmission Date: 20070319
  Serious: Yes (Hospitalization)
  Sender: FDA-Public Use
  Company Number: AR-BRISTOL-MYERS SQUIBB COMPANY-13537121

PATIENT
  Age: 73 Year
  Sex: Male

DRUGS (6)
  1. CISPLATIN [Suspect]
     Indication: GASTRIC CANCER
     Route: 041
     Dates: start: 20060913, end: 20060913
  2. FLUOROURACIL [Suspect]
     Indication: GASTRIC CANCER
     Route: 041
     Dates: start: 20060913, end: 20060917
  3. OMEPRAZOLE [Concomitant]
     Indication: PROPHYLAXIS
     Route: 048
     Dates: start: 20060901
  4. ALUMINUM HYDROXIDE [Concomitant]
     Indication: PROPHYLAXIS
     Route: 048
     Dates: start: 20060901, end: 20060918
  5. DEXAMETHASONE TAB [Concomitant]
     Indication: BONE PAIN
     Route: 048
     Dates: start: 20060901
  6. TRAMADOL HCL [Concomitant]
     Indication: BONE PAIN
     Route: 048
     Dates: start: 20060901

REACTIONS (3)
  - BONE MARROW FAILURE [None]
  - METABOLIC DISORDER [None]
  - MUCOSAL INFLAMMATION [None]
